FAERS Safety Report 9467666 (Version 2)
Quarter: 2013Q3

REPORT INFORMATION
  Report Type: Spontaneous
  Country: US (occurrence: US)
  Receive Date: 20130821
  Receipt Date: 20130912
  Transmission Date: 20140515
  Serious: No
  Sender: FDA-Public Use
  Company Number: US-B.I. PHARMACEUTICALS,INC./RIDGEFIELD-2013-BI-25067BP

PATIENT
  Age: 79 Year
  Sex: Female
  Weight: 52.6 kg

DRUGS (9)
  1. PRADAXA [Suspect]
     Indication: CEREBROVASCULAR ACCIDENT PROPHYLAXIS
     Dosage: 300 MG
     Route: 048
     Dates: start: 201212
  2. PRADAXA [Suspect]
     Indication: ATRIAL FIBRILLATION
     Dosage: 75 MG
     Route: 048
     Dates: start: 20130819
  3. LEVEMIR INSULIN [Concomitant]
  4. TOPROL XL [Concomitant]
     Dosage: 200 MG
     Route: 048
  5. LASIX [Concomitant]
     Dosage: 40 MG
     Route: 048
  6. LEVOTHYROXINE [Concomitant]
     Dosage: 50 MCG
     Route: 048
  7. LISINOPRIL [Concomitant]
     Dosage: 20 MG
     Route: 048
  8. ASPIRIN [Concomitant]
     Dosage: 81 MG
     Route: 048
  9. POTASSIUM CHLORIDE [Concomitant]
     Dosage: 20 MEQ
     Route: 048

REACTIONS (2)
  - Hyperhidrosis [Not Recovered/Not Resolved]
  - Gastroenteritis viral [Unknown]
